FAERS Safety Report 4384947-0 (Version None)
Quarter: 2004Q2

REPORT INFORMATION
  Report Type: 
  Country: None (occurrence: None)
  Receive Date: 20040622
  Receipt Date: 20040109
  Transmission Date: 20050107
  Serious: Yes (Life-Threatening, Hospitalization, Other)
  Sender: FDA-Public Use
  Company Number: A-US2003-03533

PATIENT
  Age: 23 Year
  Sex: Female

DRUGS (1)
  1. TRACLEER [Suspect]

REACTIONS (23)
  - ACCIDENTAL OVERDOSE [None]
  - ACTIVATED PARTIAL THROMBOPLASTIN TIME PROLONGED [None]
  - ANXIETY [None]
  - CATHETER RELATED COMPLICATION [None]
  - CHOLELITHIASIS [None]
  - COAGULOPATHY [None]
  - CONDITION AGGRAVATED [None]
  - DECREASED APPETITE [None]
  - DEHYDRATION [None]
  - DIZZINESS [None]
  - DYSPNOEA [None]
  - FATIGUE [None]
  - HEADACHE [None]
  - HEPATIC FAILURE [None]
  - HYPOKALAEMIA [None]
  - HYPOMAGNESAEMIA [None]
  - HYPOXIA [None]
  - INTERNATIONAL NORMALISED RATIO INCREASED [None]
  - NAUSEA [None]
  - PROTHROMBIN TIME PROLONGED [None]
  - PULMONARY HYPERTENSION [None]
  - TRICUSPID VALVE INCOMPETENCE [None]
  - VOMITING [None]
